FAERS Safety Report 5449046-5 (Version None)
Quarter: 2007Q3

REPORT INFORMATION
  Report Type: 
  Country: None (occurrence: None)
  Receive Date: 20070911
  Receipt Date: 20070905
  Transmission Date: 20080115
  Serious: Yes (Death, Life-Threatening)
  Sender: FDA-Public Use
  Company Number: GB-ASTRAZENECA-2007AC01676

PATIENT
  Age: 13 Month
  Sex: Male

DRUGS (3)
  1. LIGNOCAINE [Suspect]
     Route: 048
  2. MEGX [Concomitant]
  3. PARACETAMOL [Concomitant]

REACTIONS (1)
  - CARDIO-RESPIRATORY ARREST [None]
